FAERS Safety Report 11384270 (Version 1)
Quarter: 2015Q3

REPORT INFORMATION
  Report Type: Spontaneous
  Country: US (occurrence: US)
  Receive Date: 20150811
  Receipt Date: 20150811
  Transmission Date: 20151125
  Serious: No
  Sender: FDA-Public Use
  Company Number: US-ELI_LILLY_AND_COMPANY-US201008002728

PATIENT
  Age: 25 Year
  Sex: Female

DRUGS (2)
  1. TREPROSTINIL [Concomitant]
     Active Substance: TREPROSTINIL
     Indication: PULMONARY ARTERIAL HYPERTENSION
  2. ADCIRCA [Suspect]
     Active Substance: TADALAFIL
     Indication: PULMONARY ARTERIAL HYPERTENSION
     Dosage: 40 MG, DAILY (1/D)
     Route: 048
     Dates: start: 20100428

REACTIONS (1)
  - Exposure during pregnancy [Not Recovered/Not Resolved]

NARRATIVE: CASE EVENT DATE: 20100418
